FAERS Safety Report 9559822 (Version 1)
Quarter: 2013Q3

REPORT INFORMATION
  Report Type: Spontaneous
  Country: US (occurrence: None)
  Receive Date: 20130821
  Receipt Date: 20130821
  Transmission Date: 20140515
  Serious: No
  Sender: FDA-Public Use
  Company Number: 1000045910

PATIENT
  Age: 56 Year
  Sex: Female

DRUGS (5)
  1. LORAZEPAM (LORAZEPAM) [Concomitant]
  2. ALBUTEROL SULFATE (SALBUTAMOL SULFATE) (SALBUTAMOL SULFATE) [Concomitant]
  3. IPRATROPIUM (IPRATROPIUM) [Concomitant]
  4. TUDORZA PRESSAIR [Suspect]
     Indication: CHRONIC OBSTRUCTIVE PULMONARY DISEASE
     Dosage: 400 MCG, 2 IN 1 D, RESPIRATORY (INHALATION)
     Dates: start: 20130430
  5. PAXIL (PAROXETINE) (PAROXETINE) [Concomitant]

REACTIONS (3)
  - Nasal dryness [None]
  - Sinusitis [None]
  - Laryngitis [None]
